FAERS Safety Report 7148815-3 (Version None)
Quarter: 2010Q4

REPORT INFORMATION
  Report Type: 
  Country: None (occurrence: None)
  Receive Date: 20101209
  Receipt Date: 20101130
  Transmission Date: 20110411
  Serious: Yes (Hospitalization)
  Sender: FDA-Public Use
  Company Number: PHHO2010FR18172

PATIENT
  Sex: Male
  Weight: 66 kg

DRUGS (13)
  1. CERTICAN [Suspect]
     Indication: RENAL TRANSPLANT
     Dosage: 4MG/DAY
     Route: 048
     Dates: start: 20100829
  2. CELLCEPT [Suspect]
  3. SOLUPRED [Suspect]
  4. ROVALCYTE [Suspect]
  5. MOPRAL [Concomitant]
  6. BACTRIM [Concomitant]
  7. SECTRAL [Concomitant]
  8. NITRODERM [Concomitant]
  9. AMLOR [Concomitant]
  10. KARDEGIC [Concomitant]
  11. PLAVIX [Concomitant]
  12. ARANESP [Concomitant]
  13. EUPRESSYL [Concomitant]

REACTIONS (2)
  - COUGH [None]
  - LUNG DISORDER [None]
